FAERS Safety Report 17988364 (Version 1)
Quarter: 2020Q3

REPORT INFORMATION
  Report Type: Spontaneous
  Country: US (occurrence: US)
  Receive Date: 20200706
  Receipt Date: 20200706
  Transmission Date: 20201103
  Serious: No
  Sender: FDA-Public Use
  Company Number: None

PATIENT
  Age: 57 Year
  Sex: Female
  Weight: 96.75 kg

DRUGS (2)
  1. TRIAMTERENE 35/15MG [Concomitant]
  2. NYSTATIN WITH TRIIAMCINOLONE ACETONIDE CREAM [Suspect]
     Active Substance: NYSTATIN\TRIAMCINOLONE ACETONIDE
     Indication: VULVOVAGINAL MYCOTIC INFECTION
     Dosage: ?          QUANTITY:1 SMALL AMOUNT;?
     Route: 061
     Dates: start: 20200703, end: 20200704

REACTIONS (20)
  - Drug ineffective [None]
  - Skin atrophy [None]
  - Swelling [None]
  - Application site rash [None]
  - Application site pain [None]
  - Dermatitis [None]
  - Application site dryness [None]
  - Application site folliculitis [None]
  - Application site dermatitis [None]
  - Skin discolouration [None]
  - Vulvovaginal inflammation [None]
  - Application site discolouration [None]
  - Product label confusion [None]
  - Skin burning sensation [None]
  - Infection [None]
  - Application site pruritus [None]
  - Rash [None]
  - Blister [None]
  - Application site reaction [None]
  - Application site irritation [None]

NARRATIVE: CASE EVENT DATE: 20200704
